FAERS Safety Report 4974931-8 (Version None)
Quarter: 2006Q2

REPORT INFORMATION
  Report Type: 
  Country: None (occurrence: None)
  Receive Date: 20060418
  Receipt Date: 20060406
  Transmission Date: 20061013
  Serious: Yes (Other)
  Sender: FDA-Public Use
  Company Number: JP-NOVOPROD-252330

PATIENT
  Age: 17 Year
  Sex: Male
  Weight: 29 kg

DRUGS (1)
  1. NORDITROPIN SIMPLEXX [Suspect]
     Indication: BODY HEIGHT BELOW NORMAL

REACTIONS (1)
  - HYPERTROPHIC CARDIOMYOPATHY [None]
